FAERS Safety Report 7964707-1 (Version None)
Quarter: 2011Q4

REPORT INFORMATION
  Report Type: 
  Country: None (occurrence: None)
  Receive Date: 20111208
  Receipt Date: 20111206
  Transmission Date: 20120403
  Serious: Yes (Other)
  Sender: FDA-Public Use
  Company Number: JP-PFIZER INC-2011287907

PATIENT
  Age: 113 Month
  Sex: Female

DRUGS (3)
  1. SOMATROPIN [Suspect]
     Dosage: UNK
  2. LEVOTHYROXINE SODIUM [Suspect]
  3. PREMARIN [Suspect]

REACTIONS (1)
  - FOCAL NODULAR HYPERPLASIA [None]
